FAERS Safety Report 5747834-9 (Version None)
Quarter: 2008Q2

REPORT INFORMATION
  Report Type: 
  Country: None (occurrence: None)
  Receive Date: 20080523
  Receipt Date: 20080512
  Transmission Date: 20081010
  Serious: Yes (Death, Hospitalization, Other)
  Sender: FDA-Public Use
  Company Number: US-ROCHE-563704

PATIENT
  Age: 76 Year
  Sex: Female

DRUGS (2)
  1. XELODA [Suspect]
     Indication: RECTAL CANCER
     Dosage: STRENGTH 500+150 MG
     Route: 065
     Dates: start: 20060701
  2. GLUCOPHAGE [Concomitant]

REACTIONS (4)
  - ANAPHYLACTIC REACTION [None]
  - DIHYDROPYRIMIDINE DEHYDROGENASE DEFICIENCY [None]
  - SEPSIS [None]
  - STOMATITIS [None]
